FAERS Safety Report 7602528-X (Version None)
Quarter: 2011Q3

REPORT INFORMATION
  Report Type: 
  Country: None (occurrence: None)
  Receive Date: 20110707
  Receipt Date: 20110406
  Transmission Date: 20111222
  Serious: Yes (Hospitalization)
  Sender: FDA-Public Use
  Company Number: US-CYPR-2011-000011

PATIENT
  Sex: Male
  Weight: 8102 kg

DRUGS (8)
  1. ASPIRIN [Suspect]
     Indication: CORONARY ARTERY DISEASE
     Dosage: (81 MG QD ORAL), (325 MG QD ORAL)
     Route: 048
     Dates: start: 20091009
  2. ASPIRIN [Suspect]
     Indication: CORONARY ARTERY DISEASE
     Dosage: (81 MG QD ORAL), (325 MG QD ORAL)
     Route: 048
     Dates: start: 20090910, end: 20091008
  3. TOPROL-XL [Concomitant]
  4. CYPHER STENT [Concomitant]
  5. TRICOR [Concomitant]
  6. WELCHOL [Concomitant]
  7. CHOLINE FENOFIBRATE [Concomitant]
  8. CLOPIDOGREL [Suspect]
     Indication: ANTIPLATELET THERAPY
     Dosage: (75 MG QD ORAL)
     Route: 048
     Dates: start: 20100923

REACTIONS (1)
  - IN-STENT CORONARY ARTERY RESTENOSIS [None]
